FAERS Safety Report 8796778 (Version 2)
Quarter: 2012Q4

REPORT INFORMATION
  Report Type: 
  Country: US (occurrence: US)
  Receive Date: 20120919
  Receipt Date: 20121206
  Transmission Date: 20130627
  Serious: Yes (Hospitalization)
  Sender: FDA-Public Use
  Company Number: US-VERTEX PHARMACEUTICAL INC.-2012-021276

PATIENT
  Age: 53 Year
  Sex: Male

DRUGS (3)
  1. VX-950 (TELAPREVIR) [Suspect]
     Indication: HEPATITIS C
     Dosage: UNK
     Route: 048
     Dates: start: 20120608, end: 20120901
  2. PEGASYS [Suspect]
     Indication: HEPATITIS C
     Dosage: UNK ?g, UNK
     Dates: start: 20120608, end: 20120930
  3. RIBAPAK [Suspect]
     Indication: HEPATITIS C
     Dosage: 1200 UNK, UNK
     Dates: start: 20120608, end: 20120930

REACTIONS (2)
  - White blood cell count decreased [Recovered/Resolved]
  - Anaemia [Not Recovered/Not Resolved]
